FAERS Safety Report 18879993 (Version 1)
Quarter: 2021Q1

REPORT INFORMATION
  Report Type: Spontaneous
  Country: BR (occurrence: BR)
  Receive Date: 20210211
  Receipt Date: 20210211
  Transmission Date: 20210420
  Serious: Yes (Hospitalization, Other)
  Sender: FDA-Public Use
  Company Number: BR-009507513-2102BRA004108

PATIENT
  Sex: Female
  Weight: 56.3 kg

DRUGS (17)
  1. DOMPERIDONE [Concomitant]
     Active Substance: DOMPERIDONE
     Indication: DYSPEPSIA
     Dosage: 10 MG, QD,  IN THE MORNING
     Route: 048
     Dates: start: 2013
  2. ACTOS [Suspect]
     Active Substance: PIOGLITAZONE HYDROCHLORIDE
     Indication: DIABETES MELLITUS
     Dosage: 15 MG, QD
     Route: 048
  3. ACTOS [Suspect]
     Active Substance: PIOGLITAZONE HYDROCHLORIDE
     Dosage: 15 MG, QD
     Route: 048
  4. PANTOPRAZOLE [Concomitant]
     Active Substance: PANTOPRAZOLE
     Indication: GASTRITIS
  5. PURAN [Concomitant]
     Active Substance: LEVOTHYROXINE SODIUM
     Indication: HYPOTHYROIDISM
     Dosage: 50 MICROGRAM, QD, IN FASTING
     Route: 048
  6. DEPURA [Concomitant]
     Active Substance: CHOLECALCIFEROL
     Indication: MINERAL SUPPLEMENTATION
     Dosage: 8 DROP; FORMULATION: ORAL DROPS
     Route: 048
     Dates: start: 2014
  7. JANUVIA [Suspect]
     Active Substance: SITAGLIPTIN PHOSPHATE
     Dosage: 100 MG, UNK
     Route: 065
  8. SIMVASTATIN. [Concomitant]
     Active Substance: SIMVASTATIN
     Indication: BLOOD CHOLESTEROL
     Dosage: 20 MG, QD, AT NIGHT
     Route: 048
  9. OMEPRAZOLE. [Concomitant]
     Active Substance: OMEPRAZOLE
     Indication: PRODUCT USED FOR UNKNOWN INDICATION
     Dosage: UNK
  10. DOMPERIDONE [Concomitant]
     Active Substance: DOMPERIDONE
     Indication: GASTROOESOPHAGEAL REFLUX DISEASE
  11. TICLOPIDINE HYDROCHLORIDE. [Concomitant]
     Active Substance: TICLOPIDINE HYDROCHLORIDE
     Indication: ANTICOAGULANT THERAPY
     Dosage: 250 MG, QD, AFTER LUNCH
     Route: 048
     Dates: end: 2015
  12. FLORATIL [Concomitant]
     Active Substance: SACCHAROMYCES CEREVISIAE
     Indication: FUNCTIONAL GASTROINTESTINAL DISORDER
     Dosage: UNK
  13. PLAVIX [Concomitant]
     Active Substance: CLOPIDOGREL BISULFATE
     Indication: PRODUCT USED FOR UNKNOWN INDICATION
     Dosage: UNK
     Route: 048
  14. PANTOPRAZOLE [Concomitant]
     Active Substance: PANTOPRAZOLE
     Indication: GASTRIC DISORDER
     Dosage: QD: 40 MG; IN THE MORNING; IN FASTING
     Route: 048
     Dates: start: 2012
  15. LANZOPRAZOL [Concomitant]
     Active Substance: LANSOPRAZOLE
     Indication: PRODUCT USED FOR UNKNOWN INDICATION
     Dosage: UNK
  16. CALTRATE WITH VITAMIN D [Concomitant]
     Active Substance: CALCIUM CARBONATE\CHOLECALCIFEROL
     Indication: MINERAL SUPPLEMENTATION
     Dosage: 1 TABLET, QD
     Route: 048
     Dates: start: 2014
  17. LOSARTAN. [Concomitant]
     Active Substance: LOSARTAN
     Indication: BLOOD PRESSURE MANAGEMENT
     Dosage: 50 MG, QD
     Route: 048

REACTIONS (19)
  - Pain in extremity [Unknown]
  - Paraesthesia [Unknown]
  - Back pain [Unknown]
  - Hiatus hernia [Unknown]
  - Gastric disorder [Unknown]
  - Intervertebral disc protrusion [Not Recovered/Not Resolved]
  - Gastrointestinal haemorrhage [Unknown]
  - Intestinal haemorrhage [Unknown]
  - Diverticulitis [Unknown]
  - Diarrhoea haemorrhagic [Recovered/Resolved]
  - Walking aid user [Not Recovered/Not Resolved]
  - Haematocrit decreased [Recovered/Resolved]
  - Diarrhoea [Unknown]
  - Weight decreased [Recovered/Resolved]
  - Gastritis [Unknown]
  - Unevaluable event [Unknown]
  - Intentional product misuse [Unknown]
  - Arterial occlusive disease [Unknown]
  - Colitis [Unknown]

NARRATIVE: CASE EVENT DATE: 2012
